FAERS Safety Report 4380264-3 (Version None)
Quarter: 2004Q2

REPORT INFORMATION
  Report Type: 
  Country: None (occurrence: None)
  Receive Date: 20040616
  Receipt Date: 20040616
  Transmission Date: 20050107
  Serious: Yes (Hospitalization)
  Sender: FDA-Public Use
  Company Number: None

PATIENT
  Age: 59 Year
  Sex: Female
  Weight: 101.6057 kg

DRUGS (8)
  1. DOXIL [Suspect]
     Indication: OVARIAN CANCER
     Dosage: 105 MG IV Q 28 DAYS
     Route: 042
     Dates: start: 20040429, end: 20040528
  2. ATIVAN [Concomitant]
  3. ZOFRAN [Concomitant]
  4. COUMADIN [Concomitant]
  5. PAXIL [Concomitant]
  6. PROTONIX [Concomitant]
  7. PHENERGAN [Concomitant]
  8. MAALOX [Concomitant]

REACTIONS (3)
  - ABDOMINAL PAIN [None]
  - NAUSEA [None]
  - VOMITING [None]
